FAERS Safety Report 4322679-5 (Version None)
Quarter: 2004Q1

REPORT INFORMATION
  Report Type: 
  Country: None (occurrence: None)
  Receive Date: 20040319
  Receipt Date: 20031203
  Transmission Date: 20041129
  Serious: Yes (Other)
  Sender: FDA-Public Use
  Company Number: HQWYE449305DEC03

PATIENT
  Sex: 0

DRUGS (1)
  1. RAPAMUNE [Suspect]

REACTIONS (1)
  - PNEUMONITIS [None]
